FAERS Safety Report 14167054 (Version 1)
Quarter: 2017Q4

REPORT INFORMATION
  Report Type: Spontaneous
  Country: US (occurrence: US)
  Receive Date: 20171107
  Receipt Date: 20171107
  Transmission Date: 20180321
  Serious: Yes (Death, Hospitalization, Other)
  Sender: FDA-Public Use
  Company Number: US-DRREDDYS-USA/USA/16/0083869

PATIENT
  Age: 81 Year
  Sex: Male
  Weight: 88.3 kg

DRUGS (3)
  1. AZACITIDINE. [Suspect]
     Active Substance: AZACITIDINE
     Indication: MYELODYSPLASTIC SYNDROME
     Route: 065
     Dates: start: 20160613
  2. AZACITIDINE. [Suspect]
     Active Substance: AZACITIDINE
     Route: 065
  3. AZACITIDINE. [Suspect]
     Active Substance: AZACITIDINE
     Dosage: RECEIVED LAST DOSE ON 23 SEPTEMBER 2016
     Route: 065
     Dates: start: 20160919

REACTIONS (2)
  - Necrotising fasciitis [Fatal]
  - Pancytopenia [Unknown]

NARRATIVE: CASE EVENT DATE: 20160925
